FAERS Safety Report 8089206 (Version 3)
Quarter: 2018Q3

REPORT INFORMATION
  Report Type: Report from Study
  Country: TW (occurrence: TW)
  Receive Date: 20110813
  Receipt Date: 20180827
  Transmission Date: 20181010
  Serious: Yes (Hospitalization)
  Sender: FDA-Public Use
  Company Number: TW-AMGEN-TWNCT2011040418

PATIENT
  Age: 54 Year
  Sex: Female

DRUGS (3)
  1. EPIRUBICIN [Concomitant]
     Active Substance: EPIRUBICIN
     Dosage: 140 MG, Q3WK
     Route: 042
     Dates: start: 20110426
  2. DOCETAXEL. [Concomitant]
     Active Substance: DOCETAXEL
     Dosage: 120 MG, Q3WK
     Route: 042
     Dates: start: 20110708
  3. DENOSUMAB [Suspect]
     Active Substance: DENOSUMAB
     Indication: BREAST CANCER
     Dosage: UNK UNK, Q3WK
     Route: 058
     Dates: start: 20110519

REACTIONS (1)
  - Pyrexia [Recovered/Resolved]

NARRATIVE: CASE EVENT DATE: 20110726
